FAERS Safety Report 25711238 (Version 1)
Quarter: 2025Q3

REPORT INFORMATION
  Report Type: Spontaneous
  Country: EU (occurrence: EU)
  Receive Date: 20250821
  Receipt Date: 20250821
  Transmission Date: 20251021
  Serious: Yes (Other)
  Sender: MERCK SHARP & DOHME LLC
  Company Number: EU-009507513-2309524

PATIENT
  Age: 35 Year
  Sex: Female
  Weight: 54.3 kg

DRUGS (10)
  1. WINREVAIR [Suspect]
     Active Substance: SOTATERCEPT-CSRK
     Dosage: UNK
     Dates: start: 202502
  2. WINREVAIR [Suspect]
     Active Substance: SOTATERCEPT-CSRK
  3. WINREVAIR [Suspect]
     Active Substance: SOTATERCEPT-CSRK
  4. WINREVAIR [Suspect]
     Active Substance: SOTATERCEPT-CSRK
  5. OPSUMIT [Concomitant]
     Active Substance: MACITENTAN
     Dates: start: 202105
  6. REVATIO [Concomitant]
     Active Substance: SILDENAFIL CITRATE
     Dates: start: 200709
  7. Trisuva [Concomitant]
     Dates: start: 202102
  8. NEXIUM [Concomitant]
     Active Substance: ESOMEPRAZOLE MAGNESIUM
     Dates: start: 202404
  9. BISOPROLOL [Concomitant]
     Active Substance: BISOPROLOL
     Dates: start: 202310
  10. TRAMADOL [Concomitant]
     Active Substance: TRAMADOL
     Dates: start: 202311

REACTIONS (3)
  - Electric shock sensation [Not Recovered/Not Resolved]
  - Pain in extremity [Not Recovered/Not Resolved]
  - Hypoaesthesia [Not Recovered/Not Resolved]

NARRATIVE: CASE EVENT DATE: 20250417
